FAERS Safety Report 8796054 (Version 3)
Quarter: 2012Q4

REPORT INFORMATION
  Report Type: 
  Country: US (occurrence: US)
  Receive Date: 20120919
  Receipt Date: 20121206
  Transmission Date: 20130627
  Serious: Yes (Hospitalization, Other)
  Sender: FDA-Public Use
  Company Number: US-PFIZER INC-2012228507

PATIENT
  Age: 78 Year
  Sex: Female
  Weight: 68.03 kg

DRUGS (16)
  1. REVATIO [Suspect]
     Indication: PULMONARY ARTERIAL HYPERTENSION
     Dosage: 20 mg, 3x/day
     Route: 048
     Dates: start: 200602
  2. REVATIO [Suspect]
     Dosage: 20 mg, 1x/day
     Route: 048
  3. REMODULIN [Concomitant]
     Indication: ILL-DEFINED DISORDER
     Dosage: 25 ng/kg/min into the vein every 48 hours
     Route: 042
  4. REMODULIN [Concomitant]
     Indication: PULMONARY ARTERIAL HYPERTENSION
  5. TREPROSTINIL SODIUM [Concomitant]
     Dosage: 125 mg, 2x/day
  6. TREPROSTINIL SODIUM [Concomitant]
     Dosage: 1.69 mcg/min into the vein continuous
     Route: 042
  7. COLECALCIFEROL [Concomitant]
     Dosage: 2000 units, daily
     Route: 048
  8. LOMOTIL [Concomitant]
     Dosage: UNK, PRN
     Route: 048
  9. LASIX [Concomitant]
     Dosage: 10 mg, daily
     Route: 048
  10. XYZAL [Concomitant]
     Dosage: 5 mg, daily
     Route: 048
  11. PATANOL [Concomitant]
     Dosage: 1 drop into both eyes as needed
     Route: 047
  12. PRILOSEC [Concomitant]
     Dosage: 40 mg, daily
     Route: 048
  13. POTASSIUM [Concomitant]
     Dosage: UNK, daily
     Route: 048
  14. COUMADIN [Concomitant]
     Dosage: 4 mg, five times per week alternating with 2- 1/2 mg twice a week
     Route: 048
  15. TRACLEER [Concomitant]
     Indication: PULMONARY ARTERIAL HYPERTENSION
     Dosage: 125 mg, 2x/day
     Route: 048
  16. MULTIVITAMINS [Concomitant]
     Dosage: UNK
     Route: 048

REACTIONS (10)
  - Pulmonary embolism [Recovering/Resolving]
  - Back pain [Recovering/Resolving]
  - Chest pain [Recovering/Resolving]
  - Osteoporotic fracture [Unknown]
  - Spinal deformity [Recovering/Resolving]
  - Nerve compression [Recovering/Resolving]
  - Enterobacter sepsis [Unknown]
  - Pleuritic pain [Recovering/Resolving]
  - Sleep disorder due to general medical condition, insomnia type [Recovering/Resolving]
  - Weight decreased [Unknown]
